FAERS Safety Report 5015809-3 (Version None)
Quarter: 2006Q2

REPORT INFORMATION
  Report Type: 
  Country: None (occurrence: None)
  Receive Date: 20060525
  Receipt Date: 20060512
  Transmission Date: 20061013
  Serious: Yes (Hospitalization)
  Sender: FDA-Public Use
  Company Number: 200610398BFR

PATIENT
  Age: 74 Year
  Sex: Male
  Weight: 74 kg

DRUGS (18)
  1. SORAFENIB [Suspect]
     Indication: METASTATIC RENAL CELL CARCINOMA
     Dosage: 400 MG, BID; ORAL (SEE IMAGE)
     Route: 048
     Dates: start: 20060302, end: 20060324
  2. BIPRETERAX [Concomitant]
  3. FLODIL - SLOW RELEASE [Concomitant]
  4. SYMBICORT [Concomitant]
  5. PANTOPRAZOLE SODIUM [Concomitant]
  6. EFFERALGAN [Concomitant]
  7. PRIMALAN [Concomitant]
  8. STILNOX [Concomitant]
  9. DIPROSALIC [Concomitant]
  10. LEXOMIL [Concomitant]
  11. ALLOPURINOL [Concomitant]
  12. IMODIUM [Concomitant]
  13. POLYSILANE [Concomitant]
  14. MOPRAL [Concomitant]
  15. ANAFRANIL [Concomitant]
  16. ACTAPULGITE [Concomitant]
  17. VOGALENE [Concomitant]
  18. ZOLOFT [Concomitant]

REACTIONS (10)
  - ABDOMINAL PAIN [None]
  - BACK PAIN [None]
  - CONJUNCTIVITIS INFECTIVE [None]
  - DEHYDRATION [None]
  - DIARRHOEA [None]
  - DRUG TOXICITY [None]
  - FALL [None]
  - GENERAL PHYSICAL HEALTH DETERIORATION [None]
  - HAEMOGLOBIN DECREASED [None]
  - RENAL FAILURE ACUTE [None]
